FAERS Safety Report 8715695 (Version 2)
Quarter: 2012Q4

REPORT INFORMATION
  Report Type: Spontaneous
  Country: GB (occurrence: None)
  Receive Date: 20120725
  Receipt Date: 20120914
  Transmission Date: 20130627
  Serious: Yes (Disabling)
  Sender: FDA-Public Use
  Company Number: GER/UKI/12/0025086

PATIENT
  Age: 72 Year
  Sex: Female
  Weight: 71 kg

DRUGS (4)
  1. TERBINAFINE [Suspect]
     Indication: TINEA UNGUIUM
     Dosage: 250 MG, 1 IN 1 D, ORAL
     Route: 048
     Dates: start: 20120601, end: 20120618
  2. OMEPRAZOLE [Concomitant]
  3. RALOXIFENE HYDROCHLORIDE [Concomitant]
  4. TOLTERODINE TARTRATE [Concomitant]

REACTIONS (7)
  - Acute generalised exanthematous pustulosis [None]
  - Skin exfoliation [None]
  - Erythema [None]
  - Pruritus [None]
  - Rash pustular [None]
  - Insomnia [None]
  - Pain of skin [None]
